FAERS Safety Report 14147501 (Version 1)
Quarter: 2017Q4

REPORT INFORMATION
  Report Type: Spontaneous
  Country: ES (occurrence: ES)
  Receive Date: 20171031
  Receipt Date: 20171031
  Transmission Date: 20180321
  Serious: Yes (Other)
  Sender: FDA-Public Use
  Company Number: ES-LUNDBECK-DKLU2039341

PATIENT
  Age: 66 Year
  Sex: Female

DRUGS (4)
  1. DEANXIT [Concomitant]
     Active Substance: FLUPENTIXOL DIHYDROCHLORIDE\MELITRACEN HYDROCHLORIDE
     Indication: PRODUCT USED FOR UNKNOWN INDICATION
     Route: 065
  2. EUTIROX [Concomitant]
     Active Substance: LEVOTHYROXINE SODIUM
     Indication: PRODUCT USED FOR UNKNOWN INDICATION
     Route: 065
  3. NOIAFREN [Suspect]
     Active Substance: CLOBAZAM
     Indication: FEAR
  4. NOIAFREN [Suspect]
     Active Substance: CLOBAZAM
     Indication: ANXIETY
     Route: 048
     Dates: start: 1990

REACTIONS (5)
  - Anxiety [Recovered/Resolved]
  - Disturbance in attention [Unknown]
  - Amnesia [Unknown]
  - Drug dependence [Unknown]
  - Decreased interest [Unknown]

NARRATIVE: CASE EVENT DATE: 201710
